FAERS Safety Report 13345352 (Version 3)
Quarter: 2017Q2

REPORT INFORMATION
  Report Type: Spontaneous
  Country: US (occurrence: US)
  Receive Date: 20170317
  Receipt Date: 20170504
  Transmission Date: 20170830
  Serious: Yes (Hospitalization)
  Sender: FDA-Public Use
  Company Number: US-HORIZON-ACT-0051-2017

PATIENT
  Age: 10 Year
  Sex: Female

DRUGS (7)
  1. ACTIMMUNE [Suspect]
     Active Substance: INTERFERON GAMMA-1B
     Indication: CHRONIC GRANULOMATOUS DISEASE
     Dosage: 0.25 ML ON TUESDAY, THURSDAY AND SATURDAY
     Route: 058
     Dates: start: 20130502, end: 20170309
  2. PULMOZYME [Concomitant]
     Active Substance: DORNASE ALFA
  3. TOBI PODHALER [Suspect]
     Active Substance: TOBRAMYCIN
     Indication: UPPER RESPIRATORY TRACT INFECTION
     Dosage: 112 MG BID
     Dates: start: 20131119
  4. RAPAMUNE [Concomitant]
     Active Substance: SIROLIMUS
  5. CENTRUM KIDS [Concomitant]
  6. COLISTIMETH [Concomitant]
  7. PREDNISONE. [Concomitant]
     Active Substance: PREDNISONE

REACTIONS (2)
  - Pneumonia pseudomonal [Recovering/Resolving]
  - Body temperature increased [Recovering/Resolving]

NARRATIVE: CASE EVENT DATE: 20170221
